FAERS Safety Report 14565083 (Version 1)
Quarter: 2018Q1

REPORT INFORMATION
  Report Type: Report from Study
  Country: IL (occurrence: IL)
  Receive Date: 20180223
  Receipt Date: 20180223
  Transmission Date: 20180509
  Serious: Yes (Hospitalization, Other)
  Sender: FDA-Public Use
  Company Number: IL-BION-006972

PATIENT
  Age: 25 Year
  Sex: Male

DRUGS (4)
  1. CLOBAZAM [Interacting]
     Active Substance: CLOBAZAM
     Indication: SEIZURE
  2. VALPROIC ACID. [Suspect]
     Active Substance: VALPROIC ACID
     Indication: SEIZURE
  3. LAMOTRIGINE. [Interacting]
     Active Substance: LAMOTRIGINE
     Indication: SEIZURE
  4. LACOSAMIDE. [Interacting]
     Active Substance: LACOSAMIDE
     Indication: SEIZURE

REACTIONS (4)
  - Hyperammonaemia [Recovered/Resolved]
  - Drug interaction [Unknown]
  - Encephalopathy [Recovering/Resolving]
  - Drug ineffective [Not Recovered/Not Resolved]
